FAERS Safety Report 10152213 (Version 1)
Quarter: 2014Q2

REPORT INFORMATION
  Report Type: Spontaneous
  Country: US (occurrence: None)
  Receive Date: 20140502
  Receipt Date: 20140502
  Transmission Date: 20141212
  Serious: No
  Sender: FDA-Public Use
  Company Number: None

PATIENT
  Age: 65 Year
  Sex: Male
  Weight: 83.01 kg

DRUGS (1)
  1. RABEPRAZOLE SODIUM [Suspect]
     Indication: GASTROOESOPHAGEAL REFLUX DISEASE
     Route: 048
     Dates: start: 20131101, end: 20140131

REACTIONS (4)
  - Gastrooesophageal reflux disease [None]
  - Condition aggravated [None]
  - Product substitution issue [None]
  - Drug ineffective [None]
